FAERS Safety Report 11304202 (Version 1)
Quarter: 2015Q3

REPORT INFORMATION
  Report Type: Spontaneous
  Country: US (occurrence: US)
  Receive Date: 20150723
  Receipt Date: 20150723
  Transmission Date: 20151125
  Serious: No
  Sender: FDA-Public Use
  Company Number: US-JNJFOC-20140907624

PATIENT
  Age: 71 Year
  Sex: Female
  Weight: 113.4 kg

DRUGS (1)
  1. PEPCID AC MAXIMUM STRENGTH [Suspect]
     Active Substance: FAMOTIDINE
     Indication: GASTROINTESTINAL DISORDER THERAPY
     Dosage: 1 IN THE MORNING AND ONE IN THE PM
     Route: 048
     Dates: start: 20140616

REACTIONS (2)
  - Product packaging issue [Unknown]
  - Laceration [Recovering/Resolving]
